FAERS Safety Report 4816246-4 (Version None)
Quarter: 2005Q4

REPORT INFORMATION
  Report Type: 
  Country: None (occurrence: None)
  Receive Date: 20051026
  Receipt Date: 20051017
  Transmission Date: 20060501
  Serious: Yes (Hospitalization)
  Sender: FDA-Public Use
  Company Number: 2005-10-0940

PATIENT
  Age: 80 Year
  Sex: Male

DRUGS (3)
  1. EULEXIN [Suspect]
     Indication: PROSTATE CANCER
     Dosage: 250 MG TID ORAL
     Route: 048
     Dates: start: 20050616, end: 20050624
  2. METOPROLOL SUCCINATE [Concomitant]
  3. SIMVASTATIN [Concomitant]

REACTIONS (3)
  - ATRIAL FIBRILLATION [None]
  - CHEST DISCOMFORT [None]
  - ELECTROCARDIOGRAM ST SEGMENT ELEVATION [None]
